FAERS Safety Report 7524665-0 (Version None)
Quarter: 2011Q2

REPORT INFORMATION
  Report Type: 
  Country: None (occurrence: None)
  Receive Date: 20110606
  Receipt Date: 20110531
  Transmission Date: 20111010
  Serious: Yes (Hospitalization)
  Sender: FDA-Public Use
  Company Number: JP-PFIZER INC-2011099395

PATIENT
  Age: 75 Year
  Sex: Male

DRUGS (3)
  1. VFEND [Suspect]
     Dosage: 400 MG/DAY
     Route: 048
     Dates: start: 20110401, end: 20110421
  2. FLUCYTOSINE [Concomitant]
     Dosage: UNK
     Dates: end: 20110419
  3. VFEND [Suspect]
     Indication: MENINGITIS CRYPTOCOCCAL
     Dosage: 400 MG/DAY
     Route: 042
     Dates: start: 20110409

REACTIONS (2)
  - SEPTIC SHOCK [None]
  - PLATELET COUNT DECREASED [None]
